FAERS Safety Report 8887758 (Version 8)
Quarter: 2013Q2

REPORT INFORMATION
  Report Type: Spontaneous
  Country: US (occurrence: US)
  Receive Date: 20121106
  Receipt Date: 20130613
  Transmission Date: 20140414
  Serious: Yes (Hospitalization, Disabling, Other)
  Sender: FDA-Public Use
  Company Number: US-009507513-1206USA00341

PATIENT
  Sex: Female

DRUGS (16)
  1. FOSAMAX [Suspect]
     Indication: OSTEOPOROSIS
     Dosage: UNK
     Route: 048
     Dates: start: 200007, end: 200906
  2. FOSAMAX [Suspect]
     Indication: OSTEOPENIA
     Dosage: 10 MG, UNK
     Route: 048
  3. FOSAMAX [Suspect]
     Dosage: 70 MG, QW
     Route: 048
     Dates: end: 20080126
  4. FOSAMAX [Suspect]
     Indication: OSTEOPOROSIS
     Dosage: 70 MG, QW
     Route: 048
     Dates: start: 20080305, end: 20090523
  5. FOSAMAX [Suspect]
     Indication: OSTEOPENIA
  6. VITAMINS (UNSPECIFIED) [Concomitant]
     Dosage: UNK, QD
     Dates: start: 1990
  7. SELECTIVE ESTROGEN RECEPTOR MODULATOR (UNSPECIFIED) [Concomitant]
     Dosage: UNK
     Dates: start: 1991
  8. AVANDIA [Concomitant]
     Indication: DIABETES MELLITUS
     Dosage: UNK
     Dates: start: 20010604, end: 20060824
  9. ACTOS [Concomitant]
     Indication: DIABETES MELLITUS
     Dosage: 15 MG, BID
     Route: 048
     Dates: start: 20071122
  10. AVANDAMET [Concomitant]
     Indication: DIABETES MELLITUS
     Dosage: UNK
     Dates: start: 20051206, end: 20070926
  11. INSULIN [Concomitant]
     Indication: DIABETES MELLITUS
     Dosage: SLIDING SCALE
  12. RAMIPRIL [Concomitant]
     Indication: HYPERTENSION
     Dosage: 10 MG, QD
  13. VYTORIN [Concomitant]
     Indication: HYPERCHOLESTEROLAEMIA
     Dosage: 10/40 MG, QD
     Route: 048
  14. ACTOPLUS MET [Concomitant]
     Indication: DIABETES MELLITUS
     Dosage: 15/500 MG, BID
  15. CALCIUM (UNSPECIFIED) (+) VITAMIN D (UNSPECIFIED) [Concomitant]
     Indication: OSTEOPOROSIS
     Dosage: 1200 MG/1200 IU, QD
  16. BISOPROLOL FUMARATE (+) HYDROCHLOROTHIAZIDE [Concomitant]
     Indication: HYPERTENSION
     Dosage: 10/6.25 MG, QD

REACTIONS (48)
  - Internal fixation of fracture [Unknown]
  - Internal fixation of fracture [Unknown]
  - Periprosthetic fracture [Recovering/Resolving]
  - Open reduction of fracture [Unknown]
  - Device failure [Unknown]
  - Femur fracture [Not Recovered/Not Resolved]
  - Adverse event [Not Recovered/Not Resolved]
  - Osteoporosis [Not Recovered/Not Resolved]
  - Stress fracture [Not Recovered/Not Resolved]
  - Wrist fracture [Unknown]
  - Joint surgery [Unknown]
  - Breast cancer [Unknown]
  - Nephrolithiasis [Unknown]
  - Ureteral stent insertion [Unknown]
  - Cholecystectomy [Unknown]
  - Internal fixation of fracture [Unknown]
  - Internal fixation of fracture [Unknown]
  - Hernia repair [Unknown]
  - Hypokalaemia [Unknown]
  - Anaemia postoperative [Unknown]
  - Post procedural haemorrhage [Unknown]
  - Internal fixation of fracture [Unknown]
  - Exostosis [Unknown]
  - Intraductal proliferative breast lesion [Unknown]
  - Breast lump removal [Unknown]
  - Femur fracture [Unknown]
  - Femur fracture [Unknown]
  - Foot fracture [Unknown]
  - Dental implantation [Unknown]
  - Wrist fracture [Unknown]
  - Low turnover osteopathy [Unknown]
  - Sleep disorder [Unknown]
  - Ulna fracture [Unknown]
  - Radius fracture [Unknown]
  - Herpes virus infection [Unknown]
  - Osteoarthritis [Unknown]
  - Wound dehiscence [Recovered/Resolved]
  - Wound dehiscence [Recovered/Resolved]
  - Muscular weakness [Unknown]
  - Ligament sprain [Unknown]
  - Contusion [Unknown]
  - Foot fracture [Unknown]
  - Blood calcium increased [Unknown]
  - Vitamin D deficiency [Recovered/Resolved]
  - Coeliac disease [Unknown]
  - Hyperparathyroidism [Unknown]
  - Avulsion fracture [Unknown]
  - Radius fracture [Unknown]
